FAERS Safety Report 16154886 (Version 1)
Quarter: 2019Q2

REPORT INFORMATION
  Report Type: Spontaneous
  Country: US (occurrence: US)
  Receive Date: 20190403
  Receipt Date: 20190403
  Transmission Date: 20190711
  Serious: Yes (Hospitalization, Other)
  Sender: FDA-Public Use
  Company Number: US-PFIZER INC-2019135639

PATIENT
  Age: 72 Year
  Sex: Male
  Weight: 81.65 kg

DRUGS (2)
  1. LYRICA [Suspect]
     Active Substance: PREGABALIN
     Indication: NEUROPATHY PERIPHERAL
     Dosage: 150 MG, 2X/DAY
     Route: 048
     Dates: start: 2017, end: 20190318
  2. OXYGEN. [Concomitant]
     Active Substance: OXYGEN
     Indication: OXYGEN CONSUMPTION DECREASED
     Dosage: UNK, 1X/DAY, (OXYGEN CONCENTRATOR AT NIGHT)
     Dates: start: 2004

REACTIONS (2)
  - Insomnia [Not Recovered/Not Resolved]
  - Pneumonia [Unknown]

NARRATIVE: CASE EVENT DATE: 2017
